FAERS Safety Report 7631621-0 (Version None)
Quarter: 2011Q3

REPORT INFORMATION
  Report Type: 
  Country: None (occurrence: None)
  Receive Date: 20110725
  Receipt Date: 20110301
  Transmission Date: 20111222
  Serious: Yes (Other)
  Sender: FDA-Public Use
  Company Number: US-BRISTOL-MYERS SQUIBB COMPANY-15509326

PATIENT
  Sex: Female

DRUGS (1)
  1. COUMADIN [Suspect]
     Dosage: INTERUPTED FOR 3-5DAYS IN SEPTEMBER,OCTOBER,DECEMBER FOR ANGIOGRAM,TAB.
     Dates: start: 20100701

REACTIONS (1)
  - INTERNATIONAL NORMALISED RATIO DECREASED [None]
